FAERS Safety Report 9617625 (Version 1)
Quarter: 2013Q4

REPORT INFORMATION
  Report Type: Spontaneous
  Country: US (occurrence: US)
  Receive Date: 20131011
  Receipt Date: 20131011
  Transmission Date: 20140711
  Serious: No
  Sender: FDA-Public Use
  Company Number: US-BAYER-2013-123632

PATIENT
  Age: 66 Year
  Sex: Female
  Weight: 73 kg

DRUGS (3)
  1. ALEVE TABLET [Suspect]
     Dosage: 1 DF, PRN
     Route: 048
     Dates: start: 2012
  2. LISINOPRIL [Concomitant]
  3. MAGNESIUM [Concomitant]

REACTIONS (1)
  - Incorrect drug administration duration [None]
